FAERS Safety Report 4993506-8 (Version None)
Quarter: 2006Q2

REPORT INFORMATION
  Report Type: 
  Country: None (occurrence: None)
  Receive Date: 20060505
  Receipt Date: 20060426
  Transmission Date: 20061013
  Serious: Yes (Disabling)
  Sender: FDA-Public Use
  Company Number: 2006GB00704

PATIENT
  Age: 47 Year
  Sex: Male
  Weight: 90 kg

DRUGS (3)
  1. BUDESONIDE [Suspect]
     Indication: ASTHMA
     Route: 055
     Dates: start: 20030101
  2. FORMOTEROL [Suspect]
     Indication: ASTHMA
     Route: 055
     Dates: start: 20030101
  3. DICLOFENAC SODIUM [Concomitant]
     Indication: OSTEOARTHRITIS
     Route: 048
     Dates: start: 20030101

REACTIONS (1)
  - OSTEONECROSIS [None]
